FAERS Safety Report 11355189 (Version 2)
Quarter: 2015Q3

REPORT INFORMATION
  Report Type: Spontaneous
  Country: US (occurrence: US)
  Receive Date: 20150807
  Receipt Date: 20150922
  Transmission Date: 20151125
  Serious: No
  Sender: FDA-Public Use
  Company Number: US-PFIZER INC-2015251534

PATIENT
  Age: 55 Year
  Sex: Female

DRUGS (2)
  1. PHENOBARBITAL. [Concomitant]
     Active Substance: PHENOBARBITAL
     Dosage: 210 MG, DAILY (4 IN THE MORNING 3 IN AFTERNOON)
  2. DILANTIN [Suspect]
     Active Substance: PHENYTOIN
     Dosage: 100 MG, 2X/DAY

REACTIONS (4)
  - Feeling abnormal [Unknown]
  - Product odour abnormal [Unknown]
  - Expired product administered [Unknown]
  - Arthralgia [Unknown]
